FAERS Safety Report 15118978 (Version 2)
Quarter: 2018Q3

REPORT INFORMATION
  Report Type: Report from Study
  Country: IT (occurrence: IT)
  Receive Date: 20180709
  Receipt Date: 20180719
  Transmission Date: 20181010
  Serious: Yes (Other)
  Sender: FDA-Public Use
  Company Number: IT-TEVA-2018-IT-922631

PATIENT
  Age: 85 Year
  Sex: Female

DRUGS (6)
  1. RANITIDINE HYDROCHLORIDE. [Concomitant]
     Active Substance: RANITIDINE HYDROCHLORIDE
     Indication: GASTRIC ULCER
     Route: 048
  2. LASIX [Concomitant]
     Active Substance: FUROSEMIDE
     Indication: HYPERTENSION
     Route: 048
  3. ALLOPURINOLO SANDOZ [Concomitant]
     Indication: BLOOD URIC ACID INCREASED
     Route: 048
  4. GENTALYN [Concomitant]
     Active Substance: GENTAMICIN SULFATE
     Indication: ERYSIPELAS
     Route: 003
     Dates: start: 20180525, end: 20180527
  5. MADOPAR 200 MG + 50 MG COMPRESSE DIVISIBILI [Concomitant]
     Indication: PARKINSONISM
     Route: 048
  6. AMOXICILLINA TRIIDRATA/POTASSIO CLAVULANATO [Suspect]
     Active Substance: AMOXICILLIN\CLAVULANATE POTASSIUM
     Indication: ERYSIPELAS
     Dosage: 3 GRAM DAILY;
     Route: 048
     Dates: start: 20180525, end: 20180527

REACTIONS (3)
  - Urticaria [Unknown]
  - Drug ineffective [Unknown]
  - Exfoliative rash [Unknown]

NARRATIVE: CASE EVENT DATE: 20180527
